FAERS Safety Report 10146843 (Version 3)
Quarter: 2014Q2

REPORT INFORMATION
  Report Type: Spontaneous
  Country: IT (occurrence: IT)
  Receive Date: 20140501
  Receipt Date: 20140515
  Transmission Date: 20141212
  Serious: No
  Sender: FDA-Public Use
  Company Number: PHHY2014IT051423

PATIENT
  Age: 50 Year
  Sex: Female

DRUGS (2)
  1. SANDIMMUNE NEORAL [Suspect]
     Indication: DERMATITIS ATOPIC
     Dosage: 250 MG TO SCALE, DAILY
     Route: 048
     Dates: start: 20131115
  2. SANDIMMUNE NEORAL [Suspect]
     Dosage: UNK (DOSE REDUCED)
     Route: 048
     Dates: end: 20140401

REACTIONS (2)
  - Deafness [Recovered/Resolved]
  - Tinnitus [Recovered/Resolved]
